FAERS Safety Report 22374742 (Version 3)
Quarter: 2023Q2

REPORT INFORMATION
  Report Type: Spontaneous
  Country: IT (occurrence: IT)
  Receive Date: 20230526
  Receipt Date: 20230614
  Transmission Date: 20230721
  Serious: Yes (Other)
  Sender: FDA-Public Use
  Company Number: IT-APIL-2315088US

PATIENT
  Age: 40 Year
  Sex: Male

DRUGS (3)
  1. OZURDEX [Suspect]
     Active Substance: DEXAMETHASONE
     Indication: Diabetic retinal oedema
     Route: 031
  2. OZURDEX [Suspect]
     Active Substance: DEXAMETHASONE
     Route: 031
  3. AFLIBERCEPT [Concomitant]
     Active Substance: AFLIBERCEPT
     Indication: Diabetic retinal oedema
     Dosage: A MONTHLY CYCLE OF 3 INTRAVITREAL INJECTIONS
     Route: 050

REACTIONS (5)
  - Implantation complication [Unknown]
  - Intraocular pressure increased [Unknown]
  - Therapeutic response unexpected [Unknown]
  - Product administered at inappropriate site [Unknown]
  - Macular oedema [Unknown]
